FAERS Safety Report 4776979-5 (Version None)
Quarter: 2005Q3

REPORT INFORMATION
  Report Type: 
  Country: None (occurrence: None)
  Receive Date: 20050921
  Receipt Date: 20050913
  Transmission Date: 20060218
  Serious: Yes (Hospitalization, Other)
  Sender: FDA-Public Use
  Company Number: HQWYE100520DEC04

PATIENT
  Age: 49 Year
  Sex: Male
  Weight: 97.6 kg

DRUGS (4)
  1. RAPAMUNE [Suspect]
     Indication: PROPHYLAXIS AGAINST TRANSPLANT REJECTION
     Dosage: 3 MG 1X PER 1 DAY, ORAL
     Route: 048
     Dates: start: 20040902
  2. ZENAPAX [Concomitant]
  3. TACROLIMUS (TACROLIMUS) [Concomitant]
  4. CORTICOSTEROID NOS (CORTICOSTEROID NOS) [Concomitant]

REACTIONS (4)
  - CELLULITIS [None]
  - GANGRENE [None]
  - IMMUNOSUPPRESSION [None]
  - TOE AMPUTATION [None]
